FAERS Safety Report 8575291-6 (Version None)
Quarter: 2012Q3

REPORT INFORMATION
  Report Type: 
  Country: None (occurrence: None)
  Receive Date: 20120807
  Receipt Date: 20120717
  Transmission Date: 20120928
  Serious: No
  Sender: FDA-Public Use
  Company Number: US-JNJFOC-20120612691

PATIENT
  Sex: Female
  Weight: 81.65 kg

DRUGS (15)
  1. INVEGA [Suspect]
     Route: 048
     Dates: start: 20120501
  2. DOXYCYCLINE HCL [Concomitant]
     Route: 065
  3. FERROUS SULFATE TAB [Concomitant]
     Route: 048
  4. HYDROCHLOROTHIAZDE TAB [Concomitant]
     Indication: HYPERTENSION
     Route: 048
  5. PIMECROLIMUS [Concomitant]
     Route: 061
  6. ASPIRIN [Concomitant]
     Route: 048
  7. DOXYCYCLINE HCL [Concomitant]
     Indication: ROSACEA
     Route: 048
  8. SIMVASTATIN [Concomitant]
     Indication: HYPERLIPIDAEMIA
     Dosage: AT BED TIME
     Route: 048
  9. MULTI-VITAMINS [Concomitant]
     Route: 048
  10. INVEGA [Suspect]
     Indication: BIPOLAR DISORDER
     Route: 048
     Dates: start: 20070921, end: 20120501
  11. LISINOPRIL [Concomitant]
     Indication: ESSENTIAL HYPERTENSION
     Route: 048
  12. AN UNKNOWN MEDICATION [Concomitant]
     Route: 065
  13. CITALOPRAM HYDROBROMIDE [Concomitant]
     Indication: DEPRESSION
     Route: 048
  14. METROGEL [Concomitant]
     Route: 061
  15. RISPERIDONE [Concomitant]
     Route: 048

REACTIONS (1)
  - TREMOR [None]
